FAERS Safety Report 8420794-8 (Version None)
Quarter: 2012Q2

REPORT INFORMATION
  Report Type: 
  Country: None (occurrence: None)
  Receive Date: 20120608
  Receipt Date: 20120530
  Transmission Date: 20120825
  Serious: No
  Sender: FDA-Public Use
  Company Number: US-PFIZER INC-2012130431

PATIENT
  Sex: Female

DRUGS (2)
  1. ESTRACE [Suspect]
     Dosage: UNK
  2. PREMARIN [Suspect]
     Dosage: UNK

REACTIONS (2)
  - DRUG INEFFECTIVE [None]
  - HYPERHIDROSIS [None]
